FAERS Safety Report 20697131 (Version 1)
Quarter: 2022Q2

REPORT INFORMATION
  Report Type: Other
  Country: CN (occurrence: None)
  Receive Date: 20220411
  Receipt Date: 20220411
  Transmission Date: 20220721
  Serious: Yes (Death)
  Sender: FDA-Public Use
  Company Number: CN-ROCHE-3065312

PATIENT
  Age: 56 Year
  Sex: Male
  Weight: 50 kg

DRUGS (1)
  1. BEVACIZUMAB [Suspect]
     Active Substance: BEVACIZUMAB
     Indication: Colon cancer
     Route: 041
     Dates: start: 20170823

REACTIONS (1)
  - Tumour compression [Fatal]

NARRATIVE: CASE EVENT DATE: 20220101
